FAERS Safety Report 4566307-2 (Version None)
Quarter: 2005Q1

REPORT INFORMATION
  Report Type: 
  Country: None (occurrence: None)
  Receive Date: 20050126
  Receipt Date: 20050126
  Transmission Date: 20050727
  Serious: Yes (Death)
  Sender: FDA-Public Use
  Company Number: None

PATIENT
  Age: 89 Year
  Sex: Female
  Weight: 77.5 kg

DRUGS (1)
  1. KETOROLAC    15 MG/CC [Suspect]
     Indication: POST PROCEDURAL PAIN
     Dosage: 15 MG   Q6H PRN   INTRAMUSCU
     Route: 030
     Dates: start: 20050106, end: 20050106

REACTIONS (1)
  - RENAL FAILURE [None]
